FAERS Safety Report 17721085 (Version 1)
Quarter: 2020Q2

REPORT INFORMATION
  Report Type: Spontaneous
  Country: US (occurrence: US)
  Receive Date: 20200428
  Receipt Date: 20200428
  Transmission Date: 20200714
  Serious: No
  Sender: FDA-Public Use
  Company Number: US-TEIKOKU PHARMA USA-TPU2020-00203

PATIENT
  Sex: Male
  Weight: 127.12 kg

DRUGS (2)
  1. LIDOCAINE PATCH [Suspect]
     Active Substance: LIDOCAINE
     Indication: ARTHRALGIA
  2. LIDOCAINE PATCH [Suspect]
     Active Substance: LIDOCAINE
     Indication: BACK PAIN
     Dosage: APPLY ONE PATCH TO MOST PAINFUL AREA FOR TWELVE HOURS ON AND TWELVE HOURS OFF
     Route: 060
     Dates: start: 2018

REACTIONS (1)
  - Product availability issue [Unknown]
